FAERS Safety Report 15484972 (Version 2)
Quarter: 2018Q4

REPORT INFORMATION
  Report Type: Report from Study
  Country: US (occurrence: US)
  Receive Date: 20181010
  Receipt Date: 20181018
  Transmission Date: 20190205
  Serious: Yes (Death, Hospitalization)
  Sender: FDA-Public Use
  Company Number: US-ACTELION-A-NJ2017-163290

PATIENT
  Age: 63 Year
  Sex: Male
  Weight: 107.94 kg

DRUGS (4)
  1. ADEMPAS [Suspect]
     Active Substance: RIOCIGUAT
     Indication: PRODUCT USED FOR UNKNOWN INDICATION
     Dosage: UNK
     Route: 065
     Dates: start: 201809
  2. VELETRI [Suspect]
     Active Substance: EPOPROSTENOL
     Dosage: 8 NG/KG, PER MIN
     Route: 042
  3. VELETRI [Suspect]
     Active Substance: EPOPROSTENOL
     Indication: PULMONARY HYPERTENSION
     Dosage: 10 NG/KG, PER MIN
     Route: 042
  4. WARFARIN [Concomitant]
     Active Substance: WARFARIN

REACTIONS (17)
  - Skin abrasion [Unknown]
  - Vomiting [Unknown]
  - Exercise tolerance decreased [Unknown]
  - Headache [Unknown]
  - Contusion [Unknown]
  - Oliguria [Unknown]
  - Abdominal pain upper [Unknown]
  - Pulmonary oedema [Unknown]
  - Asthenia [Unknown]
  - Renal failure [Unknown]
  - Diarrhoea [Unknown]
  - General physical health deterioration [Fatal]
  - Fall [Unknown]
  - Dyspnoea [Unknown]
  - Clostridium difficile infection [Unknown]
  - Device connection issue [Unknown]
  - Fluid overload [Unknown]

NARRATIVE: CASE EVENT DATE: 20171228
